FAERS Safety Report 4364324-9 (Version None)
Quarter: 2004Q2

REPORT INFORMATION
  Report Type: 
  Country: None (occurrence: None)
  Receive Date: 20040525
  Receipt Date: 20030730
  Transmission Date: 20050107
  Serious: No
  Sender: FDA-Public Use
  Company Number: US-BRISTOL-MYERS SQUIBB COMPANY-12342887

PATIENT
  Age: 49 Year
  Sex: Female
  Weight: 59 kg

DRUGS (5)
  1. CYTOXAN [Suspect]
     Indication: NEPHRITIS
     Dosage: DOSAGE REPORTED AS 2.5 TABLETS
     Route: 048
     Dates: start: 20030530, end: 20030728
  2. PREDNISONE [Concomitant]
  3. FOLIC ACID [Concomitant]
  4. FOSAMAX [Concomitant]
  5. POTASSIUM [Concomitant]

REACTIONS (1)
  - RASH GENERALISED [None]
